FAERS Safety Report 10050471 (Version 2)
Quarter: 2014Q2

REPORT INFORMATION
  Report Type: Spontaneous
  Country: IT (occurrence: IT)
  Receive Date: 20140401
  Receipt Date: 20140401
  Transmission Date: 20141212
  Serious: Yes (Other)
  Sender: FDA-Public Use
  Company Number: IT-ASTRAZENECA-2013SE68711

PATIENT
  Age: 29933 Day
  Sex: Female

DRUGS (4)
  1. TENORMIN [Suspect]
     Indication: PALPITATIONS
     Route: 065
     Dates: end: 201202
  2. TENORMIN [Suspect]
     Indication: PALPITATIONS
     Dosage: HALF TABLET
     Route: 048
  3. LEXOTAN [Concomitant]
     Dosage: 2.5MG/ML
     Route: 048
  4. EUTIROX [Concomitant]

REACTIONS (4)
  - Drug abuse [Unknown]
  - Dyspnoea [Recovered/Resolved]
  - Hypotension [Recovered/Resolved]
  - Sinus bradycardia [Recovered/Resolved]
